FAERS Safety Report 25983672 (Version 1)
Quarter: 2025Q4

REPORT INFORMATION
  Report Type: Report from Study
  Country: TW (occurrence: TW)
  Receive Date: 20251031
  Receipt Date: 20251031
  Transmission Date: 20260118
  Serious: Yes (Other)
  Sender: ROCHE
  Company Number: TW-ROCHE-10000417114

PATIENT
  Age: 63 Year
  Sex: Male
  Weight: 74 kg

DRUGS (10)
  1. AVASTIN [Suspect]
     Active Substance: BEVACIZUMAB
     Indication: Hepatocellular carcinoma
     Route: 065
  2. TECENTRIQ [Suspect]
     Active Substance: ATEZOLIZUMAB
     Indication: Hepatocellular carcinoma
     Route: 065
  3. FLUOROURACIL\LEUCOVORIN CALCIUM\OXALIPLATIN [Concomitant]
     Active Substance: FLUOROURACIL\LEUCOVORIN CALCIUM\OXALIPLATIN
     Dates: start: 20250819
  4. DEXAMETHASONE PHOSPHATE [Concomitant]
     Active Substance: DEXAMETHASONE PHOSPHATE
     Route: 042
  5. PALONOSETRON [Concomitant]
     Active Substance: PALONOSETRON
     Route: 042
  6. OXALIPLATIN [Concomitant]
     Active Substance: OXALIPLATIN
  7. FLUOROURACIL [Concomitant]
     Active Substance: FLUOROURACIL
  8. LEUCOVORIN CALCIUM [Concomitant]
     Active Substance: LEUCOVORIN CALCIUM
  9. SODIUM CHLORIDE [Concomitant]
     Active Substance: SODIUM CHLORIDE
     Dosage: 240 CC, 20 CC
  10. HEPARIN LOCK FLUSH [Concomitant]
     Active Substance: HEPARIN SODIUM
     Dosage: 10 CC

REACTIONS (9)
  - Hepatocellular carcinoma [Unknown]
  - Metastases to lung [Unknown]
  - Pulmonary mass [Unknown]
  - Pyrexia [Unknown]
  - Hypertension [Unknown]
  - Proteinuria [Unknown]
  - Pruritus [Unknown]
  - Rash [Unknown]
  - Hiccups [Unknown]

NARRATIVE: CASE EVENT DATE: 20240219
